FAERS Safety Report 6125414-3 (Version None)
Quarter: 2009Q1

REPORT INFORMATION
  Report Type: 
  Country: None (occurrence: None)
  Receive Date: 20090319
  Receipt Date: 20090319
  Transmission Date: 20090719
  Serious: Yes (Other)
  Sender: FDA-Public Use
  Company Number: None

PATIENT
  Sex: Male
  Weight: 24.1 kg

DRUGS (1)
  1. LEVITIRACETAM, ROXANE [Suspect]
     Indication: COMPLEX PARTIAL SEIZURES
     Dosage: 420ML 7ML P.O. B.I.D. ORALLY
     Route: 048
     Dates: start: 20090202, end: 20090302

REACTIONS (2)
  - CONDITION AGGRAVATED [None]
  - CONVULSION [None]
